FAERS Safety Report 8276412-5 (Version None)
Quarter: 2012Q2

REPORT INFORMATION
  Report Type: 
  Country: None (occurrence: None)
  Receive Date: 20120412
  Receipt Date: 20120403
  Transmission Date: 20120825
  Serious: Yes (Hospitalization)
  Sender: FDA-Public Use
  Company Number: CA-BRISTOL-MYERS SQUIBB COMPANY-15218647

PATIENT
  Age: 54 Year
  Sex: Male
  Weight: 114 kg

DRUGS (6)
  1. CISPLATIN [Suspect]
     Indication: NON-SMALL CELL LUNG CANCER
     Dosage: ALSO TAKEN 600MG: 08JUN10 2ND + RECENT INF ON:07JUL2010 4AUG10
     Route: 042
     Dates: start: 20100608
  2. IBUPROFEN [Suspect]
     Dosage: EVERY 4 TO 6 HOURS
     Dates: start: 20100101
  3. NECITUMUMAB [Suspect]
     Indication: NON-SMALL CELL LUNG CANCER
     Dosage: 4AUG10
     Dates: start: 20100608
  4. ALIMTA [Suspect]
     Indication: NON-SMALL CELL LUNG CANCER
     Dosage: 2ND + RECENT INF ON:07JUL2010 4AUG10
     Route: 042
     Dates: start: 20100608
  5. DECADRON [Suspect]
     Route: 065
     Dates: start: 20100608, end: 20100716
  6. ASPIRIN [Suspect]
     Dates: start: 20050626

REACTIONS (2)
  - OESOPHAGEAL ULCER [None]
  - DUODENAL ULCER HAEMORRHAGE [None]
